FAERS Safety Report 14508418 (Version 1)
Quarter: 2018Q1

REPORT INFORMATION
  Report Type: Report from Study
  Country: FR (occurrence: FR)
  Receive Date: 20180209
  Receipt Date: 20180209
  Transmission Date: 20180509
  Serious: Yes (Hospitalization)
  Sender: FDA-Public Use
  Company Number: FR-BAXTER-2018BAX004528

PATIENT
  Age: 21 Year
  Sex: Female
  Weight: 98 kg

DRUGS (4)
  1. ADCETRIS [Suspect]
     Active Substance: BRENTUXIMAB VEDOTIN
     Indication: HODGKIN^S DISEASE
     Dosage: 115 MG, UNK
     Route: 042
     Dates: start: 20171124
  2. HOLOXAN 2000 MG, POUDRE POUR USAGE PARENT?RAL [Suspect]
     Active Substance: IFOSFAMIDE
     Indication: HODGKIN^S DISEASE
     Dosage: UNK
     Route: 042
     Dates: start: 20171124
  3. CELLTOP 100 MG/5 ML, SOLUTION INJECTABLE POUR PERFUSION [Suspect]
     Active Substance: ETOPOSIDE
     Indication: HODGKIN^S DISEASE
     Dosage: 200 MG, UNK
     Route: 042
     Dates: start: 20171124
  4. CARBOPLATIN. [Suspect]
     Active Substance: CARBOPLATIN
     Indication: HODGKIN^S DISEASE
     Dosage: 860 MG, UNK
     Route: 042
     Dates: start: 20171124

REACTIONS (7)
  - Weight decreased [Unknown]
  - Neutropenia [Unknown]
  - Thrombocytopenia [Unknown]
  - Anaemia [Recovered/Resolved]
  - Thrombocytopenia [Recovered/Resolved]
  - Anaemia [Unknown]
  - Neutropenia [Recovered/Resolved]

NARRATIVE: CASE EVENT DATE: 201712
